FAERS Safety Report 9778934 (Version 1)
Quarter: 2013Q4

REPORT INFORMATION
  Report Type: Report from Study
  Country: US (occurrence: US)
  Receive Date: 20131223
  Receipt Date: 20131223
  Transmission Date: 20140711
  Serious: Yes (Hospitalization)
  Sender: FDA-Public Use
  Company Number: US-US-EMD SERONO, INC.-7258894

PATIENT
  Sex: Female
  Weight: 67 kg

DRUGS (2)
  1. REBIF [Suspect]
     Indication: MULTIPLE SCLEROSIS
     Route: 058
     Dates: start: 20021220, end: 2006
  2. REBIF [Suspect]
     Route: 058

REACTIONS (5)
  - Asthenia [Unknown]
  - Fall [Unknown]
  - Hypokinesia [Unknown]
  - Jaundice [Recovered/Resolved]
  - Dehydration [Recovered/Resolved]
